FAERS Safety Report 7138560-2 (Version None)
Quarter: 2010Q4

REPORT INFORMATION
  Report Type: 
  Country: None (occurrence: None)
  Receive Date: 20101206
  Receipt Date: 20101125
  Transmission Date: 20110411
  Serious: Yes (Death)
  Sender: FDA-Public Use
  Company Number: FR-PFIZER INC-FR-WYE-G06734710

PATIENT
  Sex: Male

DRUGS (4)
  1. TAZOCILLINE [Suspect]
     Dosage: UNK
     Route: 042
     Dates: start: 20080321, end: 20080322
  2. VFEND [Suspect]
     Dosage: UNK
     Route: 065
     Dates: start: 20080322, end: 20080404
  3. TARGOCID [Suspect]
     Dosage: UNK
     Route: 065
     Dates: start: 20080310, end: 20080402
  4. TIENAM [Suspect]
     Dosage: UNK
     Route: 065
     Dates: start: 20080322, end: 20080328

REACTIONS (3)
  - CLOSTRIDIUM DIFFICILE COLITIS [None]
  - DECREASED APPETITE [None]
  - GENERAL PHYSICAL HEALTH DETERIORATION [None]
